FAERS Safety Report 4453211-3 (Version None)
Quarter: 2004Q3

REPORT INFORMATION
  Report Type: 
  Country: None (occurrence: None)
  Receive Date: 20040901
  Receipt Date: 20040705
  Transmission Date: 20050211
  Serious: Yes (Hospitalization)
  Sender: FDA-Public Use
  Company Number: US081670

PATIENT
  Age: 50 Year
  Sex: Female
  Weight: 54.43 kg

DRUGS (14)
  1. ENBREL [Suspect]
     Indication: RHEUMATOID ARTHRITIS
     Dosage: 25 MG, 2 IN 1 WEEKS, SC
     Route: 058
     Dates: start: 19980101
  2. CONJUGATED ESTROGEN [Concomitant]
  3. METHOTREXATE [Concomitant]
  4. DIAZEPAM [Concomitant]
  5. OXYCONTIN [Concomitant]
  6. TIZANIDINE HYDROCHLORIDE [Concomitant]
  7. IRON SULFATETHIAMIN COMPOUND TAB [Concomitant]
  8. FLUOXETINE HYDROCHLORIDE [Concomitant]
  9. PROCHLORPERAZINE EDISYLATE [Concomitant]
  10. DICYCLOMINE HCL [Concomitant]
  11. CALCIUM [Concomitant]
  12. FLUTICASONE PROPIONATE [Concomitant]
  13. CETIRIZINE HCL [Concomitant]
  14. ZOLPIDEM TARTRATE [Concomitant]

REACTIONS (3)
  - CYSTITIS [None]
  - MYOCARDIAL INFARCTION [None]
  - SEPSIS [None]
